FAERS Safety Report 5134891-6 (Version None)
Quarter: 2006Q4

REPORT INFORMATION
  Report Type: 
  Country: None (occurrence: None)
  Receive Date: 20061025
  Receipt Date: 20061009
  Transmission Date: 20070319
  Serious: Yes (Death, Hospitalization)
  Sender: FDA-Public Use
  Company Number: US-BRISTOL-MYERS SQUIBB COMPANY-13535661

PATIENT
  Age: 5 Year
  Sex: Female

DRUGS (3)
  1. CETUXIMAB [Suspect]
     Indication: NEPHROBLASTOMA
     Route: 042
     Dates: start: 20060911, end: 20060925
  2. IRINOTECAN HCL [Suspect]
     Indication: NEPHROBLASTOMA
     Route: 042
     Dates: start: 20060911, end: 20060922
  3. ASPIRIN [Concomitant]
     Route: 048
     Dates: start: 20060911, end: 20060927

REACTIONS (4)
  - ASCITES [None]
  - DEHYDRATION [None]
  - MALIGNANT NEOPLASM PROGRESSION [None]
  - VOMITING [None]
